FAERS Safety Report 6279241-7 (Version None)
Quarter: 2009Q3

REPORT INFORMATION
  Report Type: 
  Country: None (occurrence: None)
  Receive Date: 20090720
  Receipt Date: 20090720
  Transmission Date: 20100115
  Serious: Yes (Other)
  Sender: FDA-Public Use
  Company Number: None

PATIENT
  Age: 46 Year
  Sex: Female
  Weight: 54 kg

DRUGS (3)
  1. TENECTEPLASE [Suspect]
     Indication: ISCHAEMIC STROKE
     Dosage: 49MG -0.9MG/KG- ONE TIME IV
     Route: 042
     Dates: start: 20090524, end: 20090524
  2. ASPIRIN [Concomitant]
  3. UNKNOWN ANTIDEPRESSANT [Concomitant]

REACTIONS (6)
  - APHASIA [None]
  - ASTHENIA [None]
  - CEREBRAL HAEMORRHAGE [None]
  - CONDITION AGGRAVATED [None]
  - FACIAL PARESIS [None]
  - HYPOAESTHESIA [None]
